FAERS Safety Report 21377317 (Version 1)
Quarter: 2022Q3

REPORT INFORMATION
  Report Type: Spontaneous
  Country: JP (occurrence: JP)
  Receive Date: 20220926
  Receipt Date: 20220926
  Transmission Date: 20221027
  Serious: Yes (Hospitalization, Other)
  Sender: FDA-Public Use
  Company Number: JP-SA-2022SA392459

PATIENT
  Age: 47 Year
  Sex: Female

DRUGS (1)
  1. DUPILUMAB [Suspect]
     Active Substance: DUPILUMAB
     Indication: Cutaneous T-cell lymphoma
     Dosage: UNK

REACTIONS (7)
  - Cutaneous T-cell lymphoma [Recovering/Resolving]
  - Condition aggravated [Recovering/Resolving]
  - Skin mass [Recovering/Resolving]
  - Dermatitis exfoliative generalised [Recovering/Resolving]
  - Lymphadenopathy [Recovering/Resolving]
  - Skin lesion [Recovering/Resolving]
  - Unintentional use for unapproved indication [Recovering/Resolving]
